FAERS Safety Report 5496037-4 (Version None)
Quarter: 2007Q4

REPORT INFORMATION
  Report Type: 
  Country: None (occurrence: None)
  Receive Date: 20071025
  Receipt Date: 20070111
  Transmission Date: 20080405
  Serious: No
  Sender: FDA-Public Use
  Company Number: A0635436A

PATIENT
  Sex: Female
  Weight: 59.1 kg

DRUGS (1)
  1. ADVAIR DISKUS 100/50 [Suspect]
     Dosage: 1PUFF TWICE PER DAY
     Route: 055
     Dates: start: 20070101

REACTIONS (6)
  - CHEST DISCOMFORT [None]
  - DISCOMFORT [None]
  - FEELING JITTERY [None]
  - MYOCARDIAL INFARCTION [None]
  - NERVOUSNESS [None]
  - PALPITATIONS [None]
